FAERS Safety Report 16698913 (Version 1)
Quarter: 2019Q3

REPORT INFORMATION
  Report Type: Spontaneous
  Country: US (occurrence: US)
  Receive Date: 20190813
  Receipt Date: 20190813
  Transmission Date: 20191004
  Serious: No
  Sender: FDA-Public Use
  Company Number: US-PERRIGO-18US010292

PATIENT
  Age: 90 Year
  Sex: Male
  Weight: 81.63 kg

DRUGS (5)
  1. LORATADINE. [Suspect]
     Active Substance: LORATADINE
     Dosage: 10 MG, QD
     Route: 048
     Dates: start: 201809, end: 20180919
  2. DILTIAZEM. [Concomitant]
     Active Substance: DILTIAZEM
     Indication: BLOOD PRESSURE MEASUREMENT
     Dosage: UNK
     Route: 048
  3. LORATADINE. [Suspect]
     Active Substance: LORATADINE
     Indication: SEASONAL ALLERGY
     Dosage: 10 MG, PRN
     Route: 048
     Dates: start: 2013, end: 2017
  4. CLOPIDOGREL [Concomitant]
     Active Substance: CLOPIDOGREL BISULFATE
     Indication: ROUTINE HEALTH MAINTENANCE
     Dosage: UNK
     Route: 065
  5. THYROID HORMONES [Concomitant]
     Active Substance: UNSPECIFIED INGREDIENT
     Indication: HYPOTHYROIDISM
     Dosage: UNK
     Route: 048

REACTIONS (3)
  - Expired product administered [Recovered/Resolved]
  - Bradyphrenia [Recovered/Resolved]
  - Somnolence [Recovered/Resolved]

NARRATIVE: CASE EVENT DATE: 201809
